FAERS Safety Report 13635545 (Version 2)
Quarter: 2017Q2

REPORT INFORMATION
  Report Type: Report from Study
  Country: US (occurrence: US)
  Receive Date: 20170609
  Receipt Date: 20170619
  Transmission Date: 20170830
  Serious: Yes (Death, Other)
  Sender: FDA-Public Use
  Company Number: US-GILEAD-2017-0276802

PATIENT
  Age: 72 Year
  Sex: Female

DRUGS (8)
  1. VENTAVIS [Concomitant]
     Active Substance: ILOPROST
  2. LASIX [Concomitant]
     Active Substance: FUROSEMIDE
  3. DIGOXIN. [Concomitant]
     Active Substance: DIGOXIN
  4. AMBRISENTAN [Suspect]
     Active Substance: AMBRISENTAN
     Indication: PULMONARY ARTERIAL HYPERTENSION
     Dosage: 10 MG, QD
     Route: 065
     Dates: start: 20111108, end: 20170605
  5. SILDENAFIL. [Concomitant]
     Active Substance: SILDENAFIL
  6. ALDACTONE [Concomitant]
     Active Substance: SPIRONOLACTONE
  7. MELATONIN [Concomitant]
     Active Substance: MELATONIN
  8. OXYGEN. [Concomitant]
     Active Substance: OXYGEN

REACTIONS (1)
  - Pulmonary hypertension [Fatal]
